FAERS Safety Report 23508231 (Version 1)
Quarter: 2024Q1

REPORT INFORMATION
  Report Type: Spontaneous
  Country: US (occurrence: US)
  Receive Date: 20240209
  Receipt Date: 20240209
  Transmission Date: 20240410
  Serious: No
  Sender: FDA-Public Use
  Company Number: US-JNJFOC-20240166351

PATIENT
  Age: 74 Year
  Sex: Male

DRUGS (3)
  1. TALVEY [Suspect]
     Active Substance: TALQUETAMAB-TGVS
     Indication: Plasma cell myeloma
     Route: 065
     Dates: start: 20240116
  2. TALVEY [Suspect]
     Active Substance: TALQUETAMAB-TGVS
     Route: 065
     Dates: start: 20240118
  3. TALVEY [Suspect]
     Active Substance: TALQUETAMAB-TGVS
     Route: 065
     Dates: start: 20240120

REACTIONS (3)
  - Swollen tongue [Unknown]
  - Taste disorder [Unknown]
  - Ageusia [Unknown]

NARRATIVE: CASE EVENT DATE: 20240101
